FAERS Safety Report 4494320-2 (Version None)
Quarter: 2004Q4

REPORT INFORMATION
  Report Type: 
  Country: None (occurrence: None)
  Receive Date: 20041105
  Receipt Date: 20041028
  Transmission Date: 20050328
  Serious: Yes (Other)
  Sender: FDA-Public Use
  Company Number: BE-GLAXOSMITHKLINE-B0349634A

PATIENT
  Age: 19 Year
  Sex: Female

DRUGS (8)
  1. LAMIVUDINE [Suspect]
     Route: 065
     Dates: end: 20030420
  2. ZIDOVUDINE [Suspect]
     Route: 065
     Dates: end: 20030420
  3. EFAVIRENZ [Suspect]
     Route: 065
     Dates: end: 20040420
  4. ISONIAZID [Concomitant]
     Indication: PULMONARY TUBERCULOSIS
  5. MYAMBUTOL [Concomitant]
     Indication: PULMONARY TUBERCULOSIS
  6. PYRAZINAMIDE [Concomitant]
     Indication: PULMONARY TUBERCULOSIS
  7. RIFAMPICIN [Concomitant]
     Indication: PULMONARY TUBERCULOSIS
  8. CO-TRIMOXAZOLE [Concomitant]

REACTIONS (5)
  - COUGH [None]
  - DYSPNOEA [None]
  - IMMUNE RECONSTITUTION SYNDROME [None]
  - LUNG INFILTRATION [None]
  - PYREXIA [None]
